FAERS Safety Report 7713997-9 (Version None)
Quarter: 2011Q3

REPORT INFORMATION
  Report Type: 
  Country: None (occurrence: None)
  Receive Date: 20110826
  Receipt Date: 20110811
  Transmission Date: 20111222
  Serious: Yes (Disabling)
  Sender: FDA-Public Use
  Company Number: GB-WATSON-2011-12799

PATIENT
  Age: 91 Year
  Sex: Female

DRUGS (2)
  1. ATENOLOL [Suspect]
     Indication: HYPERTENSION
     Dosage: 25 MG, BID
     Route: 048
     Dates: start: 19990101, end: 20110706
  2. ACETAMINOPHEN [Concomitant]
     Indication: OSTEOARTHRITIS
     Dosage: 1 DF, QID
     Route: 048
     Dates: start: 19990101

REACTIONS (4)
  - DYSARTHRIA [None]
  - GAIT DISTURBANCE [None]
  - DIZZINESS [None]
  - CONDITION AGGRAVATED [None]
